FAERS Safety Report 15799934 (Version 1)
Quarter: 2019Q1

REPORT INFORMATION
  Report Type: Spontaneous
  Country: US (occurrence: US)
  Receive Date: 20190108
  Receipt Date: 20190108
  Transmission Date: 20190417
  Serious: No
  Sender: FDA-Public Use
  Company Number: US-JNJFOC-20181223336

PATIENT
  Sex: Female
  Weight: 77.11 kg

DRUGS (1)
  1. NIZORAL A-D [Suspect]
     Active Substance: KETOCONAZOLE
     Indication: DRY SKIN
     Dosage: TABLE SPOON ONCE EVERY 4-5 DAYS
     Route: 061

REACTIONS (1)
  - Hair disorder [Not Recovered/Not Resolved]
